FAERS Safety Report 9747497 (Version 2)
Quarter: 2013Q4

REPORT INFORMATION
  Report Type: Report from Study
  Country: IL (occurrence: IL)
  Receive Date: 20131212
  Receipt Date: 20131212
  Transmission Date: 20140711
  Serious: Yes (Hospitalization)
  Sender: FDA-Public Use
  Company Number: IL-BRISTOL-MYERS SQUIBB COMPANY-19846989

PATIENT
  Age: 70 Year
  Sex: Female

DRUGS (21)
  1. PACLITAXEL [Suspect]
     Indication: NON-SMALL CELL LUNG CANCER
     Dates: start: 20130812
  2. CARBOPLATIN [Suspect]
     Indication: NON-SMALL CELL LUNG CANCER
     Dates: start: 20130812
  3. BEVACIZUMAB [Suspect]
     Indication: NON-SMALL CELL LUNG CANCER
     Route: 042
     Dates: start: 20130812
  4. OMEPRADEX [Concomitant]
     Indication: HYPERCHLORHYDRIA
     Route: 048
     Dates: start: 20110801
  5. NORMALOL [Concomitant]
     Indication: HYPERTENSION
     Route: 048
     Dates: start: 20050530
  6. CARTIA [Concomitant]
     Indication: MYOCARDIAL ISCHAEMIA
     Dosage: ORAL 25MG
     Route: 054
     Dates: start: 20110530
  7. ATORVASTATIN CALCIUM [Concomitant]
     Indication: HYPERCHOLESTEROLAEMIA
     Dosage: 30MAY05-ONG ORAL 25MG
     Route: 048
     Dates: start: 20080101
  8. DUPHALAC [Concomitant]
     Indication: CONSTIPATION
     Dosage: ORAL 30MAY05-ONG 25MG
     Route: 048
     Dates: start: 20130818
  9. FAMOTIDINE [Concomitant]
     Indication: DYSPEPSIA
     Route: 048
     Dates: start: 20130818
  10. STILNOX [Concomitant]
     Indication: INSOMNIA
     Route: 048
     Dates: start: 20130411
  11. OPTALGIN [Concomitant]
     Indication: HEADACHE
     Route: 048
     Dates: start: 20131016
  12. BETAMETHASONE VALERATE+GENTAMICIN SULFATE [Concomitant]
     Indication: ERYTHEMA
     Route: 061
     Dates: start: 20131021
  13. PHENOLPHTHALEIN [Concomitant]
     Indication: CONSTIPATION
     Dosage: 20MG-30MAY2005
     Route: 048
     Dates: start: 20130818
  14. CLEXANE [Concomitant]
     Dosage: 4-4NOV13-80MG
     Route: 058
     Dates: start: 20131105, end: 20131105
  15. AMLODIPINE [Concomitant]
     Indication: HYPERTENSION
     Route: 048
     Dates: start: 20120101
  16. SERETIDE [Concomitant]
     Indication: COUGH
     Dosage: 1DF=250-UNITS NOS
     Dates: start: 20130915
  17. OFLOXACIN [Concomitant]
     Indication: URINARY TRACT INFECTION
     Route: 048
     Dates: start: 20120929, end: 20131008
  18. SLOW-K [Concomitant]
     Indication: HYPOKALAEMIA
     Route: 048
     Dates: start: 20131105, end: 20131114
  19. BONDORMIN [Concomitant]
     Indication: INSOMNIA
     Route: 048
     Dates: start: 20131104, end: 20131105
  20. MAGNESIUM [Concomitant]
     Indication: HYPOMAGNESAEMIA
     Route: 048
     Dates: start: 20131105, end: 20131105
  21. CARTIA [Concomitant]
     Dates: start: 20110530

REACTIONS (1)
  - Febrile neutropenia [Unknown]
